FAERS Safety Report 6438853-8 (Version None)
Quarter: 2009Q4

REPORT INFORMATION
  Report Type: 
  Country: None (occurrence: None)
  Receive Date: 20091110
  Receipt Date: 20091110
  Transmission Date: 20100525
  Serious: Yes (Hospitalization)
  Sender: FDA-Public Use
  Company Number: TRP_06555_2009

PATIENT
  Age: 26 Year
  Sex: Male

DRUGS (6)
  1. RIBAVARIN [Suspect]
     Indication: HEPATITIS C
     Dates: start: 20090303, end: 20090930
  2. PEGASYS [Suspect]
     Indication: HEPATITIS C
     Dosage: (180 UG 1X/WEEK SUBCUTANEOUS)
     Route: 058
     Dates: start: 20090303, end: 20090930
  3. ZOLOFT /01011402/ [Concomitant]
  4. MARINOL [Concomitant]
  5. MULTIVITAMINS PLUS IRON [Concomitant]
  6. MULTI-VITAMINS [Concomitant]

REACTIONS (2)
  - BACK PAIN [None]
  - INFECTED CYST [None]
